FAERS Safety Report 18055691 (Version 1)
Quarter: 2020Q3

REPORT INFORMATION
  Report Type: Spontaneous
  Country: CN (occurrence: CN)
  Receive Date: 20200722
  Receipt Date: 20200722
  Transmission Date: 20201103
  Serious: Yes (Other)
  Sender: FDA-Public Use
  Company Number: CN-ASTRAZENECA-2020SE87631

PATIENT
  Age: 50 Year
  Sex: Male

DRUGS (2)
  1. ICOTINIB [Concomitant]
     Active Substance: ICOTINIB
     Dosage: DOSE AND FREQUENCY UNKNOWN
     Route: 065
  2. TAGRISSO [Suspect]
     Active Substance: OSIMERTINIB
     Indication: LUNG NEOPLASM MALIGNANT
     Dosage: ONE TABLET AT 06:30 EVERY DAY MORNING
     Route: 048
     Dates: start: 2020

REACTIONS (5)
  - Pharyngeal mass [Unknown]
  - Tracheal obstruction [Unknown]
  - Dyspnoea [Recovering/Resolving]
  - Cough [Recovering/Resolving]
  - Chest discomfort [Recovering/Resolving]
